FAERS Safety Report 21292271 (Version 1)
Quarter: 2022Q3

REPORT INFORMATION
  Report Type: Spontaneous
  Country: CN (occurrence: CN)
  Receive Date: 20220905
  Receipt Date: 20220905
  Transmission Date: 20221026
  Serious: Yes (Other)
  Sender: FDA-Public Use
  Company Number: None

PATIENT
  Age: 70 Year
  Sex: Female
  Weight: 42 kg

DRUGS (4)
  1. CYCLOPHOSPHAMIDE [Suspect]
     Active Substance: CYCLOPHOSPHAMIDE
     Indication: Breast cancer female
     Dosage: 0.8 G ONCE DAILY, DILUTED WITH 100 ML OF 0.9% SODIUM CHLORIDE SOLUTION
     Route: 041
     Dates: start: 20220811, end: 20220811
  2. SODIUM CHLORIDE [Suspect]
     Active Substance: SODIUM CHLORIDE
     Indication: Medication dilution
     Dosage: 100 ML, ONCE A DAILY, DILUTED IN 0.8 G OF CYCLOPHOSPHAMIDE INJECTION
     Route: 041
     Dates: start: 20220811, end: 20220811
  3. SODIUM CHLORIDE [Suspect]
     Active Substance: SODIUM CHLORIDE
     Dosage: 250 ML, ONCE A DAILY, DILUTED IN 40 MG OF DOXORRUBICIN LIPOSOME INJECTION
     Route: 041
     Dates: start: 20220811, end: 20220811
  4. DOXORUBICIN HYDROCHLORIDE [Suspect]
     Active Substance: DOXORUBICIN HYDROCHLORIDE
     Indication: Breast cancer female
     Dosage: 40 MG ONCE DAILY, DILUTED WITH 250 ML OF 0.9% SODIUM CHLORIDE SOLUTION
     Route: 041
     Dates: start: 20220811, end: 20220811

REACTIONS (1)
  - Myelosuppression [Unknown]

NARRATIVE: CASE EVENT DATE: 20220814
